FAERS Safety Report 8926172 (Version 2)
Quarter: 2012Q4

REPORT INFORMATION
  Report Type: 
  Country: US (occurrence: US)
  Receive Date: 20121127
  Receipt Date: 20121204
  Transmission Date: 20130627
  Serious: No
  Sender: FDA-Public Use
  Company Number: US-009507513-1211USA009021

PATIENT
  Age: 41 Year
  Sex: Male

DRUGS (2)
  1. PEGINTRON [Suspect]
     Indication: HEPATITIS C
     Dosage: UNK
     Route: 058
     Dates: start: 20040511
  2. RIBAVIRIN [Suspect]
     Indication: HEPATITIS C
     Dosage: UNK
     Route: 048
     Dates: start: 20040511

REACTIONS (8)
  - Hepatitis C [Unknown]
  - Arthralgia [Unknown]
  - Malaise [Unknown]
  - Pyrexia [Unknown]
  - Hepatitis C [Unknown]
  - Pyrexia [Unknown]
  - Influenza [Unknown]
  - Burning sensation [Unknown]
